FAERS Safety Report 6240187-1 (Version None)
Quarter: 2009Q2

REPORT INFORMATION
  Report Type: 
  Country: None (occurrence: None)
  Receive Date: 20090618
  Receipt Date: 20090618
  Transmission Date: 20091009
  Serious: Yes (Other)
  Sender: FDA-Public Use
  Company Number: None

PATIENT
  Age: 76 Year
  Sex: Female
  Weight: 65.7716 kg

DRUGS (1)
  1. LEVAQUIN [Suspect]
     Indication: BRONCHITIS
     Dosage: 7 TABLETS 1/DAY PO
     Route: 048
     Dates: start: 20081229, end: 20090104

REACTIONS (8)
  - ABDOMINAL DISCOMFORT [None]
  - ARTHRALGIA [None]
  - BRONCHITIS [None]
  - GAIT DISTURBANCE [None]
  - INJURY [None]
  - LIGAMENT PAIN [None]
  - PLANTAR FASCIITIS [None]
  - TENDON PAIN [None]
